FAERS Safety Report 6419873-6 (Version None)
Quarter: 2009Q4

REPORT INFORMATION
  Report Type: 
  Country: None (occurrence: None)
  Receive Date: 20091029
  Receipt Date: 20091026
  Transmission Date: 20100525
  Serious: Yes (Other)
  Sender: FDA-Public Use
  Company Number: ES-MERCK-0910ESP00031

PATIENT
  Age: 80 Year
  Sex: Female
  Weight: 50 kg

DRUGS (1)
  1. JANUVIA [Suspect]
     Indication: TYPE 2 DIABETES MELLITUS
     Route: 048
     Dates: start: 20090317, end: 20090517

REACTIONS (3)
  - BLOOD CREATININE INCREASED [None]
  - CONDITION AGGRAVATED [None]
  - GLOMERULAR FILTRATION RATE DECREASED [None]
